FAERS Safety Report 6084251-9 (Version None)
Quarter: 2009Q1

REPORT INFORMATION
  Report Type: 
  Country: None (occurrence: None)
  Receive Date: 20090219
  Receipt Date: 20090212
  Transmission Date: 20090719
  Serious: Yes (Other)
  Sender: FDA-Public Use
  Company Number: CA-ELI_LILLY_AND_COMPANY-CA200902003209

PATIENT
  Age: 16 Year
  Sex: Male

DRUGS (3)
  1. STRATTERA [Suspect]
     Dosage: 25 MG, UNKNOWN
     Route: 065
     Dates: start: 20081001, end: 20080101
  2. STRATTERA [Suspect]
     Dosage: 40 MG, UNKNOWN
     Route: 065
     Dates: start: 20080101, end: 20080101
  3. STRATTERA [Suspect]
     Dosage: 25 MG, UNKNOWN
     Route: 065

REACTIONS (2)
  - CHEST PAIN [None]
  - TACHYCARDIA [None]
